FAERS Safety Report 18278390 (Version 1)
Quarter: 2020Q3

REPORT INFORMATION
  Report Type: Spontaneous
  Country: US (occurrence: US)
  Receive Date: 20200917
  Receipt Date: 20200917
  Transmission Date: 20201103
  Serious: No
  Sender: FDA-Public Use
  Company Number: US-PERRIGO-20US010351

PATIENT
  Age: 82 Year
  Sex: Female
  Weight: 75.74 kg

DRUGS (2)
  1. GUAIFENESIN?DEXTROMETHORPHAN HYDROBROMIDE [Suspect]
     Active Substance: DEXTROMETHORPHAN HYDROBROMIDE\GUAIFENESIN
     Indication: INCREASED UPPER AIRWAY SECRETION
     Dosage: 1 TABLET, EVERY 12 HOURS
     Route: 048
     Dates: start: 20200707, end: 20200713
  2. ELDERBERRY                         /01651601/ [Concomitant]
     Indication: ROUTINE HEALTH MAINTENANCE
     Dosage: UNK
     Route: 065
     Dates: start: 202005

REACTIONS (1)
  - Drug ineffective [Unknown]

NARRATIVE: CASE EVENT DATE: 20200707
